FAERS Safety Report 4507058-X (Version None)
Quarter: 2004Q4

REPORT INFORMATION
  Report Type: 
  Country: None (occurrence: None)
  Receive Date: 20041122
  Receipt Date: 20041118
  Transmission Date: 20050328
  Serious: Yes (Other)
  Sender: FDA-Public Use
  Company Number: US-MERCK-0411USA03084

PATIENT
  Age: 51 Year
  Sex: Male
  Weight: 64 kg

DRUGS (7)
  1. ZOCOR [Suspect]
     Route: 048
     Dates: start: 20031007
  2. COMBIVIR [Suspect]
     Indication: HIV INFECTION
     Route: 048
  3. LITHIUM CARBONATE [Suspect]
     Indication: BIPOLAR I DISORDER
     Route: 048
     Dates: end: 20030101
  4. ZYPREXA [Suspect]
     Route: 065
  5. BACTRIM [Suspect]
     Route: 065
  6. SUSTIVA [Suspect]
     Indication: HIV INFECTION
     Route: 065
  7. CONCERTA [Suspect]
     Indication: ATTENTION DEFICIT/HYPERACTIVITY DISORDER
     Route: 065

REACTIONS (6)
  - ASTHENIA [None]
  - DIARRHOEA [None]
  - DRUG INTERACTION [None]
  - NAUSEA [None]
  - THERAPEUTIC AGENT TOXICITY [None]
  - VOMITING [None]
